FAERS Safety Report 12131395 (Version 1)
Quarter: 2016Q1

REPORT INFORMATION
  Report Type: Spontaneous
  Country: FR (occurrence: FR)
  Receive Date: 20160301
  Receipt Date: 20160301
  Transmission Date: 20160526
  Serious: Yes (Life-Threatening, Hospitalization, Other)
  Sender: FDA-Public Use
  Company Number: FR-PFIZER INC-2016113905

PATIENT
  Age: 3 Year
  Sex: Female
  Weight: 14 kg

DRUGS (2)
  1. ADVILMED ENFANTS ET NOURRISSONS [Suspect]
     Active Substance: IBUPROFEN
     Indication: PYREXIA
     Dosage: 1 DF, 4X/DAY (DOSE/WEIGHT EVERY 6 HOURS )
     Route: 048
     Dates: start: 20160129, end: 20160131
  2. ADVILMED ENFANTS ET NOURRISSONS [Suspect]
     Active Substance: IBUPROFEN
     Indication: ABDOMINAL PAIN

REACTIONS (8)
  - Rash [Recovered/Resolved]
  - Condition aggravated [Recovered/Resolved]
  - Lung disorder [Recovered/Resolved]
  - Cardiovascular disorder [Recovered/Resolved]
  - Pneumonia streptococcal [Recovered/Resolved]
  - Tachycardia [Recovered/Resolved]
  - Cheilitis [Recovered/Resolved]
  - Respiratory distress [Recovered/Resolved]

NARRATIVE: CASE EVENT DATE: 20160131
